FAERS Safety Report 24437396 (Version 1)
Quarter: 2024Q4

REPORT INFORMATION
  Report Type: Other
  Country: IN (occurrence: IN)
  Receive Date: 20241015
  Receipt Date: 20241015
  Transmission Date: 20250114
  Serious: Yes (Other)
  Sender: APTAPHARMA INC.
  Company Number: IN-AptaPharma Inc.-2163057

PATIENT
  Sex: Female

DRUGS (15)
  1. IBUPROFEN [Suspect]
     Active Substance: IBUPROFEN
     Indication: Migraine
  2. NAPROXEN [Suspect]
     Active Substance: NAPROXEN
  3. FLUNARIZINE [Suspect]
     Active Substance: FLUNARIZINE
  4. PREDNISOLONE [Suspect]
     Active Substance: PREDNISOLONE
  5. NAPROXEN\SUMATRIPTAN SUCCINATE [Suspect]
     Active Substance: NAPROXEN\SUMATRIPTAN SUCCINATE
  6. ACETAMINOPHEN\CAFFEINE\ERGOTAMINE\PROCHLORPERAZINE [Suspect]
     Active Substance: ACETAMINOPHEN\CAFFEINE\ERGOTAMINE\PROCHLORPERAZINE
  7. PROPRANOLOL [Suspect]
     Active Substance: PROPRANOLOL HYDROCHLORIDE
  8. DICLOFENAC SODIUM [Suspect]
     Active Substance: DICLOFENAC SODIUM
  9. VALPROATE SODIUM [Suspect]
     Active Substance: VALPROATE SODIUM
  10. AMITRIPTYLINE HYDROCHLORIDE [Suspect]
     Active Substance: AMITRIPTYLINE HYDROCHLORIDE
  11. ERGOTAMINE [Suspect]
     Active Substance: CAFFEINE\ERGOTAMINE\ERGOTAMINE TARTRATE
     Dates: start: 2022
  12. RIZATRIPTAN [Suspect]
     Active Substance: RIZATRIPTAN
  13. TRAMADOL [Suspect]
     Active Substance: TRAMADOL
  14. TOPIRAMATE [Suspect]
     Active Substance: TOPIRAMATE
  15. SUMATRIPTAN [Suspect]
     Active Substance: SUMATRIPTAN

REACTIONS (2)
  - Serotonin syndrome [Recovered/Resolved]
  - Drug ineffective for unapproved indication [Unknown]
